FAERS Safety Report 4737951-4 (Version None)
Quarter: 2005Q3

REPORT INFORMATION
  Report Type: 
  Country: None (occurrence: None)
  Receive Date: 20050805
  Receipt Date: 20050805
  Transmission Date: 20060218
  Serious: Yes (Hospitalization)
  Sender: FDA-Public Use
  Company Number: None

PATIENT
  Age: 62 Year
  Sex: Female
  Weight: 99.7913 kg

DRUGS (2)
  1. REMICADE [Suspect]
     Indication: RHEUMATOID ARTHRITIS
     Dosage: 600 MG IV Q 8 WKS
     Route: 042
     Dates: start: 20000501
  2. IMURAN [Suspect]
     Indication: RHEUMATOID ARTHRITIS
     Dosage: 50 MG BID
     Dates: start: 20040101

REACTIONS (6)
  - ABSCESS [None]
  - BLOOD CULTURE POSITIVE [None]
  - CELLULITIS [None]
  - IMMUNOSUPPRESSION [None]
  - INFECTION [None]
  - SEPSIS [None]
